FAERS Safety Report 8571388 (Version 4)
Quarter: 2013Q3

REPORT INFORMATION
  Report Type: Spontaneous
  Country: US (occurrence: US)
  Receive Date: 20120521
  Receipt Date: 20130809
  Transmission Date: 20140515
  Serious: Yes (Hospitalization, Other)
  Sender: FDA-Public Use
  Company Number: US-ROCHE-784160

PATIENT
  Sex: Female
  Weight: 79.45 kg

DRUGS (3)
  1. ACCUTANE [Suspect]
     Indication: ACNE
     Route: 065
     Dates: start: 1990, end: 1991
  2. ACCUTANE [Suspect]
     Route: 065
     Dates: start: 19900310, end: 19900711
  3. ACCUTANE [Suspect]
     Route: 065
     Dates: start: 19910204, end: 19910304

REACTIONS (6)
  - Intestinal obstruction [Unknown]
  - Colitis ulcerative [Unknown]
  - Inflammatory bowel disease [Unknown]
  - Emotional distress [Unknown]
  - Irritable bowel syndrome [Unknown]
  - Iron deficiency anaemia [Unknown]
